FAERS Safety Report 7974077-0 (Version None)
Quarter: 2011Q4

REPORT INFORMATION
  Report Type: 
  Country: None (occurrence: None)
  Receive Date: 20111213
  Receipt Date: 20111207
  Transmission Date: 20120403
  Serious: Yes (Hospitalization)
  Sender: FDA-Public Use
  Company Number: AU-B.I. PHARMACEUTICALS,INC./RIDGEFIELD-2011-AU-00658AU

PATIENT
  Sex: Male

DRUGS (4)
  1. PRADAXA [Suspect]
     Dosage: 220 MG
  2. LIPITOR [Concomitant]
  3. RAMIPRIL [Concomitant]
  4. LANOXIN [Concomitant]

REACTIONS (2)
  - BLOOD URINE PRESENT [None]
  - URINARY TRACT OBSTRUCTION [None]
